FAERS Safety Report 7554879-5 (Version None)
Quarter: 2011Q2

REPORT INFORMATION
  Report Type: 
  Country: None (occurrence: None)
  Receive Date: 20110615
  Receipt Date: 20110615
  Transmission Date: 20111010
  Serious: Yes (Other)
  Sender: FDA-Public Use
  Company Number: None

PATIENT
  Age: 59 Year
  Sex: Female
  Weight: 59.8748 kg

DRUGS (5)
  1. ADVIL LIQUI-GELS [Concomitant]
  2. TYLENO [Concomitant]
  3. ALLIEVE [Concomitant]
  4. BONIVA [Suspect]
     Indication: OSTEOPOROSIS
     Dosage: 1 TABLET - 150 MG 1 PER MONTH PO
     Route: 048
     Dates: start: 20110507, end: 20110507
  5. BONIVA [Suspect]
     Indication: OSTEOPOROSIS
     Dosage: 1 TABLET - 150 MG 1 PER MONTH PO
     Route: 048
     Dates: start: 20110604, end: 20110604

REACTIONS (8)
  - ARTHRALGIA [None]
  - MUSCLE SPASMS [None]
  - PAIN IN EXTREMITY [None]
  - MYALGIA [None]
  - DYSSTASIA [None]
  - OCULAR HYPERAEMIA [None]
  - GAIT DISTURBANCE [None]
  - DYSPEPSIA [None]
